FAERS Safety Report 24005466 (Version 2)
Quarter: 2024Q3

REPORT INFORMATION
  Report Type: Spontaneous
  Country: FR (occurrence: FR)
  Receive Date: 20240624
  Receipt Date: 20240703
  Transmission Date: 20241017
  Serious: Yes (Life-Threatening, Hospitalization)
  Sender: SK LIFE SCIENCE
  Company Number: FR-ACRAF SpA-2024-034840

PATIENT

DRUGS (3)
  1. XCOPRI [Suspect]
     Active Substance: CENOBAMATE
     Indication: Partial seizures
     Dosage: UNK
     Route: 048
     Dates: start: 20221222, end: 20230519
  2. PERAMPANEL [Concomitant]
     Active Substance: PERAMPANEL
     Indication: Product used for unknown indication
     Dosage: 8 MILLIGRAM
     Route: 048
  3. ZONISAMIDE [Concomitant]
     Active Substance: ZONISAMIDE
     Indication: Product used for unknown indication
     Dosage: 400 MILLIGRAM
     Route: 048

REACTIONS (3)
  - Toxicity to various agents [Unknown]
  - Substance abuse [Unknown]
  - Coma [Unknown]

NARRATIVE: CASE EVENT DATE: 20230519
